FAERS Safety Report 5985149-4 (Version None)
Quarter: 2008Q4

REPORT INFORMATION
  Report Type: 
  Country: None (occurrence: None)
  Receive Date: 20081203
  Receipt Date: 20081120
  Transmission Date: 20090506
  Serious: Yes (Other)
  Sender: FDA-Public Use
  Company Number: 238873J08USA

PATIENT
  Age: 54 Year
  Sex: Female
  Weight: 51 kg

DRUGS (5)
  1. REBIF [Suspect]
     Indication: MULTIPLE SCLEROSIS
     Dosage: 44 MCG, 3 IN 1 WEEKS, SUBCUTANEOUS
     Route: 058
     Dates: start: 20070314, end: 20080901
  2. STEROIDS (CORTICCOSTEROID NOS) [Suspect]
     Dosage: 1 IN 1 MONTHS, INTRAVENOUS; 600 MG, 1 IN 1 MONTH, INTRVENOUS
     Route: 042
     Dates: start: 20080229, end: 20080817
  3. STEROIDS (CORTICCOSTEROID NOS) [Suspect]
     Dosage: 1 IN 1 MONTHS, INTRAVENOUS; 600 MG, 1 IN 1 MONTH, INTRVENOUS
     Route: 042
     Dates: start: 20080901, end: 20080901
  4. FLEXERIL [Concomitant]
  5. UPLIFT (ALL OTHER THERAPEUTIC PRODUCTS) [Concomitant]

REACTIONS (2)
  - HEPATIC ENZYME INCREASED [None]
  - REFUSAL OF TREATMENT BY PATIENT [None]
